FAERS Safety Report 4864602-0 (Version None)
Quarter: 2005Q4

REPORT INFORMATION
  Report Type: 
  Country: None (occurrence: None)
  Receive Date: 20051222
  Receipt Date: 20051128
  Transmission Date: 20060501
  Serious: Yes (Death)
  Sender: FDA-Public Use
  Company Number: IL-NOVOPROD-248870

PATIENT
  Sex: Female

DRUGS (3)
  1. NOVOSEVEN [Suspect]
     Indication: ILL-DEFINED DISORDER
     Dosage: 80 UG/KG, SINGLE
     Dates: start: 20051127
  2. COUMADIN [Concomitant]
  3. FRESH FROZEN PLASMA [Concomitant]
     Dosage: 12 IU, SINGLE
     Dates: start: 20051127

REACTIONS (5)
  - ARRHYTHMIA [None]
  - CARDIO-RESPIRATORY ARREST [None]
  - MYOCARDIAL INFARCTION [None]
  - POST PROCEDURAL COMPLICATION [None]
  - PULMONARY EMBOLISM [None]
